FAERS Safety Report 6926377-0 (Version None)
Quarter: 2010Q3

REPORT INFORMATION
  Report Type: 
  Country: None (occurrence: None)
  Receive Date: 20100816
  Receipt Date: 20100816
  Transmission Date: 20110219
  Serious: Yes (Hospitalization, Other)
  Sender: FDA-Public Use
  Company Number: None

PATIENT
  Age: 57 Year
  Sex: Male
  Weight: 99.7913 kg

DRUGS (1)
  1. SMOKE TIP E CIG [Suspect]

REACTIONS (3)
  - DIARRHOEA [None]
  - HEART RATE DECREASED [None]
  - VIITH NERVE PARALYSIS [None]
